FAERS Safety Report 18189503 (Version 2)
Quarter: 2020Q3

REPORT INFORMATION
  Report Type: Report from Study
  Country: None (occurrence: US)
  Receive Date: 20200825
  Receipt Date: 20200929
  Transmission Date: 20201103
  Serious: Yes (Hospitalization, Other)
  Sender: FDA-Public Use
  Company Number: US-ABBVIE-20K-163-3536256-00

PATIENT
  Sex: Male

DRUGS (2)
  1. IMBRUVICA [Suspect]
     Active Substance: IBRUTINIB
     Indication: CHRONIC LYMPHOCYTIC LEUKAEMIA
     Route: 048
     Dates: start: 20200624
  2. IMBRUVICA [Suspect]
     Active Substance: IBRUTINIB
     Route: 048

REACTIONS (5)
  - Acute pulmonary oedema [Unknown]
  - Cardiac pacemaker insertion [Unknown]
  - Dyspnoea [Unknown]
  - Cardiac valve disease [Unknown]
  - Catheterisation cardiac [Unknown]

NARRATIVE: CASE EVENT DATE: 2020
